FAERS Safety Report 15727712 (Version 2)
Quarter: 2019Q4

REPORT INFORMATION
  Report Type: Spontaneous
  Country: US (occurrence: US)
  Receive Date: 20181217
  Receipt Date: 20191212
  Transmission Date: 20200122
  Serious: No
  Sender: FDA-Public Use
  Company Number: US-NOVEN PHARMACEUTICALS, INC.-US2018000187

PATIENT

DRUGS (6)
  1. MINIVELLE [Suspect]
     Active Substance: ESTRADIOL
     Indication: HORMONE REPLACEMENT THERAPY
     Dosage: 0.1 MG, 3-4 DAYS
     Route: 062
     Dates: start: 201801
  2. MINIVELLE [Suspect]
     Active Substance: ESTRADIOL
     Dosage: 0.05 MG, UNK
     Route: 062
     Dates: start: 2018, end: 2018
  3. PROGESTERONE. [Concomitant]
     Active Substance: PROGESTERONE
  4. MINIVELLE [Suspect]
     Active Substance: ESTRADIOL
     Indication: OFF LABEL USE
     Dosage: 0.1 MG, 3-4 DAYS
     Route: 062
     Dates: start: 2018
  5. MINIVELLE [Suspect]
     Active Substance: ESTRADIOL
     Dosage: 0.025 MG, 2/WK
     Route: 062
     Dates: start: 2018
  6. VALPRAX [Concomitant]
     Dosage: 500 MG, QD

REACTIONS (10)
  - Therapeutic product effect delayed [Unknown]
  - Product prescribing error [Not Recovered/Not Resolved]
  - Incorrect product administration duration [Recovered/Resolved]
  - Weight increased [Not Recovered/Not Resolved]
  - Product dose omission [Recovered/Resolved]
  - Rash [Unknown]
  - Product adhesion issue [Unknown]
  - Pigmentation disorder [Not Recovered/Not Resolved]
  - Product quality issue [Unknown]
  - Off label use [Not Recovered/Not Resolved]

NARRATIVE: CASE EVENT DATE: 2018
